FAERS Safety Report 9256807 (Version 2)
Quarter: 2013Q4

REPORT INFORMATION
  Report Type: Report from Study
  Country: BE (occurrence: BE)
  Receive Date: 20130426
  Receipt Date: 20131008
  Transmission Date: 20140711
  Serious: Yes (Hospitalization)
  Sender: FDA-Public Use
  Company Number: BE-PFIZER INC-2013051057

PATIENT
  Age: 66 Year
  Sex: Female

DRUGS (43)
  1. FLUOROURACIL [Suspect]
     Indication: METASTATIC GASTRIC CANCER
     Dosage: CYCLE 1 (1 IN 21 D)
     Route: 041
     Dates: start: 20120305, end: 20120310
  2. FLUOROURACIL [Suspect]
     Dosage: CYCLE 2 (1 IN 21 D)
     Route: 041
     Dates: start: 20120326, end: 20120331
  3. CISPLATIN [Suspect]
     Indication: METASTATIC GASTRIC CANCER
     Dosage: CYCLE 1 (1 IN 21 D)
     Route: 041
     Dates: start: 20120305, end: 20120305
  4. CISPLATIN [Suspect]
     Dosage: CYCLE 2 (1 IN 21 D)
     Route: 041
     Dates: start: 20120326
  5. MS CONTIN [Concomitant]
     Indication: ODYNOPHAGIA
     Dosage: UNK (1 AS REQUIRED)
     Dates: start: 20120316
  6. ATACAND [Concomitant]
     Indication: HYPERTENSION
     Dosage: UNK
     Dates: start: 20050525
  7. ATACAND [Concomitant]
     Dosage: UNK
     Dates: start: 20120411
  8. ORTHO-GYNEST [Concomitant]
     Indication: OOPHORECTOMY
     Dosage: UNK
     Dates: start: 20110307
  9. BAREXAL [Concomitant]
     Indication: DIARRHOEA
     Dosage: UNK (1 AS REQUIRED)
     Dates: start: 20120305
  10. BAREXAL [Concomitant]
     Dosage: UNK (1 AS REQUIRED)
     Dates: start: 20120411
  11. DAFALGAN [Concomitant]
     Indication: PYREXIA
     Dosage: UNK (1 AS REQUIRED)
     Dates: start: 20120328
  12. DAFALGAN [Concomitant]
     Dosage: UNK (1 AS REQUIRED)
     Dates: start: 20120411
  13. IMODIUM [Concomitant]
     Indication: DIARRHOEA
     Dosage: UNK (1 AS REQUIRED)
     Dates: start: 20120312
  14. EMEND [Concomitant]
     Indication: PROPHYLAXIS OF NAUSEA AND VOMITING
     Dosage: UNK
     Dates: start: 20120305, end: 20120602
  15. MOTILIUM [Concomitant]
     Indication: NAUSEA
     Dosage: UNK (1 AS REQUIRED)
     Dates: start: 20120311
  16. OLAMINE [Concomitant]
     Indication: VITAMIN SUPPLEMENTATION
     Dosage: UNK
     Dates: start: 20101208
  17. NEUROBION [Concomitant]
     Indication: GASTRECTOMY
     Dosage: UNK
     Dates: start: 20100330
  18. SODIUM BICARBONATE [Concomitant]
     Indication: STOMATITIS
     Dosage: UNK (1 AS REQUIRED)
     Route: 002
     Dates: start: 20120313
  19. SODIUM BICARBONATE [Concomitant]
     Dosage: UNK (1 AS REQUIRED)
     Route: 002
     Dates: start: 20120411
  20. ENTEROL [Concomitant]
     Indication: DIARRHOEA
     Dosage: UNK (1 AS REQUIRED)
     Dates: start: 2012
  21. MOVICOL [Concomitant]
     Indication: CONSTIPATION PROPHYLAXIS
     Dosage: UNK
     Dates: start: 20120313
  22. LITICAN [Concomitant]
     Indication: NAUSEA
     Dosage: AS REQUIRED
     Dates: start: 20120311
  23. PANTOMED [Concomitant]
     Indication: DYSPEPSIA
     Dosage: UNK (1 AS REQUIRED)
     Dates: start: 20120406
  24. PANTOMED [Concomitant]
     Indication: NAUSEA
  25. PRIMPERAN [Concomitant]
     Indication: NAUSEA
     Dosage: UNK
     Dates: start: 20120316
  26. SYNGEL [Concomitant]
     Indication: PROPHYLAXIS
     Dosage: UNK, FEEDING TUBE
     Dates: start: 20120314
  27. SYNGEL [Concomitant]
     Dosage: UNK, FEEDING TUBE
     Dates: start: 20120315, end: 20120402
  28. SYNGEL [Concomitant]
     Dosage: UNK, FEEDING TUBE
     Dates: start: 20120411, end: 20120413
  29. PRESERVISION (OCUVITE LUTEINE) [Concomitant]
     Indication: VITAMIN SUPPLEMENTATION
     Dosage: UNK
     Dates: start: 20101001
  30. SOFTENE [Concomitant]
     Indication: CONSTIPATION PROPHYLAXIS
     Dosage: UNK
     Dates: start: 20120315
  31. MS DIRECT [Concomitant]
     Indication: ODYNOPHAGIA
     Dosage: UNK (1 AS REQUIRED)
     Dates: start: 20120315
  32. POTASSIUM CHLORIDE [Concomitant]
     Indication: HYPOKALAEMIA
     Dosage: UNK
     Route: 042
     Dates: start: 20120402, end: 20120405
  33. XYLOCAIN GEL BUCCAL [Concomitant]
     Indication: STOMATITIS
     Dosage: UNK
     Route: 002
     Dates: start: 20120402, end: 20120407
  34. ISOSOURCE ENERGY [Concomitant]
     Indication: DECREASED APPETITE
     Dosage: UNK
     Dates: start: 20120327, end: 20120607
  35. EMCONCOR [Concomitant]
     Indication: PROPHYLAXIS
     Dosage: UNK
     Dates: start: 20120322, end: 20120328
  36. PARACETAMOL [Concomitant]
     Indication: PROPHYLAXIS
     Dosage: UNK
     Dates: start: 20120402, end: 20120407
  37. NEXIUM [Concomitant]
     Indication: ODYNOPHAGIA
     Dosage: UNK
     Dates: start: 20120402, end: 20120405
  38. SODIUM CHLORIDE [Concomitant]
     Indication: HYPONATRAEMIA
     Dosage: UNK
     Dates: start: 20120402, end: 20120405
  39. FRAXIPARIN [Concomitant]
     Indication: THROMBOSIS PROPHYLAXIS
     Dosage: UNK
     Dates: start: 20120405, end: 20120406
  40. FRAXIPARIN [Concomitant]
     Dosage: UNK
     Dates: start: 20120412, end: 20120413
  41. ONDANSETRON [Concomitant]
     Indication: PROPHYLAXIS OF NAUSEA AND VOMITING
     Dosage: UNK
     Dates: start: 20120305, end: 20120531
  42. DEXAMETHASON [Concomitant]
     Indication: PROPHYLAXIS
     Dosage: UNK
     Dates: start: 20120305, end: 20120531
  43. MEDROL [Concomitant]
     Indication: PROPHYLAXIS
     Dosage: UNK
     Dates: start: 20120305

REACTIONS (2)
  - Hypokalaemia [Recovered/Resolved]
  - Neutropenia [Recovered/Resolved]
